FAERS Safety Report 25990133 (Version 1)
Quarter: 2025Q4

REPORT INFORMATION
  Report Type: Spontaneous
  Country: IN (occurrence: IN)
  Receive Date: 20251103
  Receipt Date: 20251103
  Transmission Date: 20260118
  Serious: Yes (Other)
  Sender: FRESENIUS KABI
  Company Number: IN-FreseniusKabi-FK202514417

PATIENT
  Age: 48 Year
  Sex: Female
  Weight: 54.9 kg

DRUGS (2)
  1. CARBOPLATIN [Suspect]
     Active Substance: CARBOPLATIN
     Indication: Tongue cancer metastatic
     Route: 042
  2. Inj. NAB-Paclitaxel [Concomitant]
     Indication: Tongue cancer metastatic
     Route: 042

REACTIONS (5)
  - Ocular hyperaemia [Recovered/Resolved]
  - Lacrimation increased [Recovered/Resolved]
  - Lip swelling [Recovered/Resolved]
  - Tachycardia [Recovered/Resolved]
  - Eye swelling [Recovered/Resolved]

NARRATIVE: CASE EVENT DATE: 20251013
